FAERS Safety Report 6595125-9 (Version None)
Quarter: 2010Q1

REPORT INFORMATION
  Report Type: 
  Country: None (occurrence: None)
  Receive Date: 20100212
  Receipt Date: 20100203
  Transmission Date: 20100710
  Serious: Yes (Other)
  Sender: FDA-Public Use
  Company Number: 1000011767

PATIENT
  Age: 83 Year
  Sex: Male

DRUGS (2)
  1. MEMANTINE HCL [Suspect]
     Dosage: ORAL
     Route: 048
  2. CHOLINESTERASE INHIBITOR (NOS) [Concomitant]

REACTIONS (1)
  - PHLEBITIS [None]
